FAERS Safety Report 6715959-7 (Version None)
Quarter: 2010Q2

REPORT INFORMATION
  Report Type: 
  Country: None (occurrence: None)
  Receive Date: 20100507
  Receipt Date: 20100504
  Transmission Date: 20101027
  Serious: Yes (Death, Other)
  Sender: FDA-Public Use
  Company Number: NL-SANOFI-AVENTIS-2010SA026094

PATIENT
  Sex: Male

DRUGS (3)
  1. OXALIPLATIN [Suspect]
     Route: 041
  2. AVASTIN [Suspect]
     Route: 041
  3. XELODA [Suspect]
     Route: 048

REACTIONS (2)
  - CARDIAC DISORDER [None]
  - DISEASE PROGRESSION [None]
